FAERS Safety Report 7634258-2 (Version None)
Quarter: 2011Q3

REPORT INFORMATION
  Report Type: 
  Country: None (occurrence: None)
  Receive Date: 20110725
  Receipt Date: 20110718
  Transmission Date: 20111222
  Serious: Yes (Other)
  Sender: FDA-Public Use
  Company Number: US-BAYER-2011-062819

PATIENT
  Sex: Male

DRUGS (1)
  1. MIRENA [Suspect]
     Route: 003

REACTIONS (5)
  - URINARY TRACT INFECTION [None]
  - PENIS DISORDER [None]
  - PENILE PAIN [None]
  - DEVICE EXPULSION [None]
  - INJURY [None]
